FAERS Safety Report 6449974-8 (Version None)
Quarter: 2009Q4

REPORT INFORMATION
  Report Type: 
  Country: None (occurrence: None)
  Receive Date: 20091120
  Receipt Date: 20091120
  Transmission Date: 20100525
  Serious: No
  Sender: FDA-Public Use
  Company Number: None

PATIENT
  Age: 42 Year
  Sex: Male
  Weight: 106.5953 kg

DRUGS (1)
  1. NAPROXEN [Suspect]
     Indication: LIGAMENT RUPTURE
     Dosage: ONE TABLET TWICE A DAY PO
     Route: 048
     Dates: start: 20090818, end: 20090926

REACTIONS (1)
  - TINNITUS [None]
